FAERS Safety Report 13877119 (Version 1)
Quarter: 2017Q3

REPORT INFORMATION
  Report Type: Spontaneous
  Country: CA (occurrence: CA)
  Receive Date: 20170817
  Receipt Date: 20170817
  Transmission Date: 20171127
  Serious: Yes (Other)
  Sender: FDA-Public Use
  Company Number: CA-GLAXOSMITHKLINE-CA2017GSK126780

PATIENT
  Age: 76 Year
  Sex: Female

DRUGS (1)
  1. VOLTAREN [Suspect]
     Active Substance: DICLOFENAC SODIUM
     Indication: LIMB DISCOMFORT
     Dosage: UNK

REACTIONS (7)
  - Wound [Unknown]
  - Contusion [Unknown]
  - Pain [Unknown]
  - Skin abrasion [Unknown]
  - Urticaria [Unknown]
  - Skin burning sensation [Unknown]
  - Rash [Unknown]
